FAERS Safety Report 4282544-9 (Version None)
Quarter: 2004Q1

REPORT INFORMATION
  Report Type: 
  Country: None (occurrence: None)
  Receive Date: 20040129
  Receipt Date: 20040114
  Transmission Date: 20041129
  Serious: Yes (Hospitalization)
  Sender: FDA-Public Use
  Company Number: 204200

PATIENT
  Age: 21 Year
  Sex: Female
  Weight: 121.5 kg

DRUGS (8)
  1. XOLAIR [Suspect]
     Indication: ASTHMA
     Dosage: 300 MG, Q2W, SUBCUTANEOUS
     Route: 058
     Dates: start: 20031222
  2. INSULIN [Concomitant]
  3. ALDACTONE [Concomitant]
  4. PREVACID [Concomitant]
  5. REGLAN [Concomitant]
  6. PROCARDIA [Concomitant]
  7. COUMADIN [Concomitant]
  8. DIOVAN [Concomitant]

REACTIONS (4)
  - CHEST DISCOMFORT [None]
  - DRY MOUTH [None]
  - DYSPNOEA [None]
  - HYPERGLYCAEMIA [None]
